FAERS Safety Report 5755454-5 (Version None)
Quarter: 2008Q2

REPORT INFORMATION
  Report Type: 
  Country: None (occurrence: None)
  Receive Date: 20080602
  Receipt Date: 20080521
  Transmission Date: 20081010
  Serious: Yes (Other)
  Sender: FDA-Public Use
  Company Number: US-BAYER-200811986BCC

PATIENT
  Age: 34 Year
  Sex: Female
  Weight: 86 kg

DRUGS (3)
  1. ALEVE [Suspect]
     Indication: ANALGESIA
     Dosage: UNIT DOSE: 220 MG
     Route: 048
     Dates: start: 20080322, end: 20080322
  2. ALEVE (CAPLET) [Suspect]
     Indication: ANALGESIA
     Dosage: UNIT DOSE: 220 MG
     Route: 048
     Dates: start: 20080322
  3. NEXIUM [Concomitant]

REACTIONS (4)
  - HYPERSENSITIVITY [None]
  - OEDEMA PERIPHERAL [None]
  - SWOLLEN TONGUE [None]
  - URTICARIA [None]
